FAERS Safety Report 23067894 (Version 1)
Quarter: 2023Q4

REPORT INFORMATION
  Report Type: Spontaneous
  Country: US (occurrence: US)
  Receive Date: 20231016
  Receipt Date: 20231016
  Transmission Date: 20240110
  Serious: Yes (Death, Hospitalization, Other)
  Sender: FDA-Public Use
  Company Number: US-CIPLA LTD.-2023US06306

PATIENT

DRUGS (1)
  1. WARFARIN [Suspect]
     Active Substance: WARFARIN
     Indication: Deep vein thrombosis
     Dosage: UNK
     Route: 065

REACTIONS (7)
  - Pericardial haemorrhage [Fatal]
  - Cardiac tamponade [Fatal]
  - Cardiac arrest [Fatal]
  - Blood lactic acid increased [Unknown]
  - Acute kidney injury [Unknown]
  - International normalised ratio abnormal [Recovered/Resolved]
  - Sepsis [Unknown]
